FAERS Safety Report 6149101-0 (Version None)
Quarter: 2009Q2

REPORT INFORMATION
  Report Type: 
  Country: None (occurrence: None)
  Receive Date: 20090409
  Receipt Date: 20090331
  Transmission Date: 20091009
  Serious: Yes (Other)
  Sender: FDA-Public Use
  Company Number: US-JNJFOC-20090204582

PATIENT
  Sex: Female
  Weight: 68.04 kg

DRUGS (1)
  1. DURAGESIC-100 [Suspect]
     Indication: BACK PAIN
     Route: 062

REACTIONS (4)
  - DRUG ADMINISTERED AT INAPPROPRIATE SITE [None]
  - INTERVERTEBRAL DISC DISORDER [None]
  - OSTEOPOROSIS [None]
  - WRONG TECHNIQUE IN DRUG USAGE PROCESS [None]
